FAERS Safety Report 8406169-6 (Version None)
Quarter: 2012Q2

REPORT INFORMATION
  Report Type: 
  Country: None (occurrence: None)
  Receive Date: 20120323
  Receipt Date: 20110518
  Transmission Date: 20120825
  Serious: Yes (Life-Threatening, Hospitalization, Other)
  Sender: FDA-Public Use
  Company Number: 163-21880-11052525

PATIENT
  Age: 69 Year
  Sex: Female
  Weight: 45.8133 kg

DRUGS (17)
  1. REVLIMID [Suspect]
     Indication: MULTIPLE MYELOMA
     Dosage: 25 MG, 21/7, PO
     Route: 048
     Dates: start: 20100923
  2. CLINDAMYCIN [Concomitant]
  3. ZOLOFT [Concomitant]
  4. ZITHROMAX [Concomitant]
  5. BENDARYL (CLONALIN) [Concomitant]
  6. ASPIRIN [Concomitant]
  7. UNASYN (UNACID) [Concomitant]
  8. REVLIMID [Suspect]
     Indication: MULTIPLE MYELOMA
     Dosage: 15 MG, 1 IN 1 D, PO
     Route: 048
     Dates: start: 20110501
  9. SLOW RELEASE IRON (IRON) [Concomitant]
  10. ZOMETA [Concomitant]
  11. DEXAMETHASONE [Concomitant]
  12. IBUPROFEN (ADVIL) [Concomitant]
  13. COUMADIN [Concomitant]
  14. PAIN MEDICATION (ANALGESICS) [Concomitant]
  15. LORTAB [Concomitant]
  16. PRINZIDE [Concomitant]
  17. SINEMET [Concomitant]

REACTIONS (4)
  - CELLULITIS [None]
  - THROMBOSIS [None]
  - PNEUMONIA FUNGAL [None]
  - ASTHENIA [None]
